FAERS Safety Report 8138118-2 (Version None)
Quarter: 2012Q1

REPORT INFORMATION
  Report Type: 
  Country: None (occurrence: None)
  Receive Date: 20120103
  Receipt Date: 20111031
  Transmission Date: 20120608
  Serious: No
  Sender: FDA-Public Use
  Company Number: AE-2011-001519

PATIENT
  Age: 59 Year
  Sex: Male
  Weight: 74.3899 kg

DRUGS (3)
  1. INCIVEK [Suspect]
     Dosage: 2250 MG (750 MG, 3 IN 1 D), ORAL
     Route: 048
     Dates: start: 20110805, end: 20110906
  2. PEGINTRO N(PEGINTERFERON ALFA-2A) [Concomitant]
  3. RIBAVIRIN [Concomitant]

REACTIONS (6)
  - FATIGUE [None]
  - SKIN EXFOLIATION [None]
  - ANAL PRURITUS [None]
  - RASH GENERALISED [None]
  - DIZZINESS [None]
  - ANORECTAL DISCOMFORT [None]
